FAERS Safety Report 7372075-1 (Version None)
Quarter: 2011Q1

REPORT INFORMATION
  Report Type: 
  Country: None (occurrence: None)
  Receive Date: 20110324
  Receipt Date: 20110315
  Transmission Date: 20110831
  Serious: Yes (Other)
  Sender: FDA-Public Use
  Company Number: US-ASTRAZENECA-2011SE10405

PATIENT
  Age: 39 Year
  Sex: Female

DRUGS (2)
  1. CRESTOR [Suspect]
     Route: 048
  2. TOPROL-XL [Suspect]
     Route: 048

REACTIONS (4)
  - CARDIAC DISORDER [None]
  - ARTERIAL OCCLUSIVE DISEASE [None]
  - DIABETES MELLITUS [None]
  - STENT PLACEMENT [None]
